FAERS Safety Report 10597759 (Version 1)
Quarter: 2014Q4

REPORT INFORMATION
  Report Type: Spontaneous
  Country: US (occurrence: None)
  Receive Date: 20141120
  Receipt Date: 20141120
  Transmission Date: 20150529
  Serious: No
  Sender: FDA-Public Use
  Company Number: None

PATIENT
  Age: 52 Year
  Sex: Male
  Weight: 81.65 kg

DRUGS (5)
  1. CENTRUM SILVER VITAMIN [Concomitant]
  2. NOVOLOG [Concomitant]
     Active Substance: INSULIN ASPART
  3. CYMBALTA [Suspect]
     Active Substance: DULOXETINE HYDROCHLORIDE
     Indication: DEPRESSION
     Dosage: CAPSULES
     Route: 048
     Dates: start: 20130627, end: 20130728
  4. LEVEMIR [Concomitant]
     Active Substance: INSULIN DETEMIR
  5. ALEVE [Concomitant]
     Active Substance: NAPROXEN SODIUM

REACTIONS (3)
  - Ocular icterus [None]
  - Rash [None]
  - Libido disorder [None]

NARRATIVE: CASE EVENT DATE: 20130728
